FAERS Safety Report 5122644-4 (Version None)
Quarter: 2006Q4

REPORT INFORMATION
  Report Type: 
  Country: None (occurrence: None)
  Receive Date: 20061004
  Receipt Date: 20060925
  Transmission Date: 20070319
  Serious: Yes (Other)
  Sender: FDA-Public Use
  Company Number: 2006-02467

PATIENT
  Age: 58 Year
  Sex: Male

DRUGS (3)
  1. VELCADE [Suspect]
     Indication: LEUKAEMIA PLASMACYTIC
     Dosage: 1.30 MG/M2
  2. ADRIAMYCIN PFS [Suspect]
     Indication: LEUKAEMIA PLASMACYTIC
     Dosage: 9.00 MG/M2
  3. DEXAMETHASONE TAB [Suspect]
     Indication: LEUKAEMIA PLASMACYTIC
     Dosage: 40.00 MG

REACTIONS (2)
  - HERPES ZOSTER DISSEMINATED [None]
  - STEM CELL TRANSPLANT [None]
